FAERS Safety Report 21547121 (Version 1)
Quarter: 2022Q4

REPORT INFORMATION
  Report Type: Spontaneous
  Country: US (occurrence: US)
  Receive Date: 20221103
  Receipt Date: 20221103
  Transmission Date: 20230113
  Serious: Yes (Hospitalization)
  Sender: FDA-Public Use
  Company Number: US-002147023-NVSC2022US242853

PATIENT
  Age: 42 Year
  Sex: Female

DRUGS (3)
  1. HYDROXYZINE [Suspect]
     Active Substance: HYDROXYZINE HYDROCHLORIDE
     Indication: Product used for unknown indication
     Dosage: UNK, EMPTY BOTTLES
     Route: 065
  2. ESZOPICLONE [Suspect]
     Active Substance: ESZOPICLONE
     Indication: Product used for unknown indication
     Dosage: UNK, EMPTY BOTTLES
     Route: 065
  3. TIZANIDINE [Suspect]
     Active Substance: TIZANIDINE
     Indication: Product used for unknown indication
     Dosage: EMPTY BOTTLES
     Route: 065

REACTIONS (5)
  - Unresponsive to stimuli [Unknown]
  - Seizure [Unknown]
  - Depressed level of consciousness [Unknown]
  - Hypotension [Recovering/Resolving]
  - Overdose [Unknown]
